FAERS Safety Report 10045389 (Version 6)
Quarter: 2014Q3

REPORT INFORMATION
  Report Type: Report from Study
  Country: AU (occurrence: AU)
  Receive Date: 20140328
  Receipt Date: 20140922
  Transmission Date: 20150326
  Serious: Yes (Hospitalization)
  Sender: FDA-Public Use
  Company Number: AU-EXELIXIS-XL18414004111

PATIENT
  Age: 59 Year
  Sex: Male
  Weight: 90.6 kg

DRUGS (13)
  1. DENOSUMAB [Concomitant]
     Active Substance: DENOSUMAB
  2. XL184 [Suspect]
     Active Substance: CABOZANTINIB
     Indication: PROSTATE CANCER
     Dosage: 5 MG, BID
     Route: 048
     Dates: start: 20130809, end: 20140318
  3. XL184 [Suspect]
     Active Substance: CABOZANTINIB
     Indication: PROSTATE CANCER
     Dosage: 60 MG, QD
     Route: 048
     Dates: start: 20130809
  4. XL184 [Suspect]
     Active Substance: CABOZANTINIB
     Dosage: 40 MG, QD
     Route: 048
     Dates: end: 20140318
  5. SLOW RECOVERY IMMUNE HEALTH [Concomitant]
  6. SUPERMUSHROOM COMPLEX [Concomitant]
  7. ZOLADEX [Concomitant]
     Active Substance: GOSERELIN ACETATE
  8. LERCANIDIPINE [Concomitant]
     Active Substance: LERCANIDIPINE
  9. RAMIPRIL. [Concomitant]
     Active Substance: RAMIPRIL
  10. ATORVASTATIN [Concomitant]
     Active Substance: ATORVASTATIN
  11. NOVOMIX INSULIN [Concomitant]
  12. ULTRA PREVENTIVE [Concomitant]
  13. LYMPHODRAN PLUS [Concomitant]

REACTIONS (4)
  - Meningioma [None]
  - Haemoglobin decreased [None]
  - Hepatitis [Recovered/Resolved]
  - Fatigue [Recovered/Resolved]

NARRATIVE: CASE EVENT DATE: 20140201
